FAERS Safety Report 5825190-5 (Version None)
Quarter: 2008Q3

REPORT INFORMATION
  Report Type: 
  Country: None (occurrence: None)
  Receive Date: 20080729
  Receipt Date: 20080718
  Transmission Date: 20090109
  Serious: Yes (Other)
  Sender: FDA-Public Use
  Company Number: PHHY2008NO14599

PATIENT

DRUGS (14)
  1. CLOZAPINE [Suspect]
     Indication: SCHIZOPHRENIA, DISORGANISED TYPE
     Dosage: 50 MG
     Route: 065
     Dates: start: 19990212, end: 20000607
  2. CLOZAPINE [Suspect]
     Dosage: 100 MG
     Route: 065
  3. CLOZAPINE [Suspect]
     Dosage: 250 MG, UNK
     Dates: start: 20000607, end: 20001014
  4. CLOZAPINE [Suspect]
     Dosage: 300 MG, UNK
     Dates: start: 20001014, end: 20050621
  5. CLOZAPINE [Suspect]
     Dosage: 12.5 MG, UNK
     Dates: start: 20050621, end: 20050701
  6. CIPRAMIL [Concomitant]
     Indication: OBSESSIVE-COMPULSIVE DISORDER
  7. ALOPAM [Concomitant]
  8. FLUANXOL [Concomitant]
     Dosage: UNK
     Dates: start: 19960101
  9. FLUANXOL [Concomitant]
     Dosage: UNK
     Dates: start: 19970301
  10. COGENTIN [Concomitant]
     Dosage: 1 MG, BID
     Dates: start: 20000607
  11. CLONAZEPAM [Concomitant]
  12. IMOVANE [Concomitant]
  13. VITAMINS NOS [Concomitant]
  14. ZYPREXA [Concomitant]
     Dosage: UNK
     Route: 065
     Dates: start: 19981005

REACTIONS (17)
  - ANXIETY [None]
  - COGNITIVE DISORDER [None]
  - DELUSION [None]
  - DISTURBANCE IN ATTENTION [None]
  - DYSPHAGIA [None]
  - FATIGUE [None]
  - HALLUCINATION [None]
  - HALLUCINATION, AUDITORY [None]
  - HALLUCINATION, VISUAL [None]
  - HYPERSOMNIA [None]
  - LISTLESS [None]
  - OBSESSIVE-COMPULSIVE DISORDER [None]
  - PHYSICAL DISABILITY [None]
  - PSYCHOTIC DISORDER [None]
  - SALIVARY HYPERSECRETION [None]
  - VISUAL IMPAIRMENT [None]
  - WEIGHT INCREASED [None]
